FAERS Safety Report 9370313 (Version 1)
Quarter: 2013Q2

REPORT INFORMATION
  Report Type: Report from Study
  Country: CA (occurrence: CA)
  Receive Date: 20130626
  Receipt Date: 20130626
  Transmission Date: 20140414
  Serious: Yes (Hospitalization, Other)
  Sender: FDA-Public Use
  Company Number: CA-JNJFOC-20130614535

PATIENT
  Age: 84 Year
  Sex: Female
  Weight: 38 kg

DRUGS (11)
  1. REMICADE [Suspect]
     Indication: RHEUMATOID ARTHRITIS
     Route: 042
     Dates: start: 20130607
  2. REMICADE [Suspect]
     Indication: RHEUMATOID ARTHRITIS
     Route: 042
     Dates: start: 20070613
  3. METHOTREXATE [Concomitant]
     Route: 065
  4. CELEBREX [Concomitant]
     Route: 065
  5. COZAAR [Concomitant]
     Route: 065
  6. NORVASC [Concomitant]
     Route: 065
  7. DIDROCAL [Concomitant]
     Route: 065
  8. MORPHINE SULPHATE [Concomitant]
     Route: 065
  9. PREVACID [Concomitant]
     Route: 065
  10. NORTRIPTYLINE [Concomitant]
     Route: 065
  11. PALAFER [Concomitant]
     Route: 065

REACTIONS (4)
  - Diarrhoea [Unknown]
  - Vomiting [Unknown]
  - Pyrexia [Unknown]
  - Malaise [Unknown]
